FAERS Safety Report 9846224 (Version 1)
Quarter: 2014Q1

REPORT INFORMATION
  Report Type: Spontaneous
  Country: DE (occurrence: DE)
  Receive Date: 20140127
  Receipt Date: 20140127
  Transmission Date: 20141002
  Serious: Yes (Other)
  Sender: FDA-Public Use
  Company Number: DE-PFIZER INC-2014019102

PATIENT
  Sex: Male

DRUGS (2)
  1. SUTENT [Suspect]
     Indication: NEOPLASM MALIGNANT
     Dosage: 50 MG, UNK
  2. SUTENT [Suspect]
     Dosage: 37.5 MG, UNK

REACTIONS (3)
  - Haemorrhagic diathesis [Unknown]
  - Disease progression [Unknown]
  - Neoplasm malignant [Unknown]
